FAERS Safety Report 7216043-9 (Version None)
Quarter: 2011Q1

REPORT INFORMATION
  Report Type: 
  Country: None (occurrence: None)
  Receive Date: 20110105
  Receipt Date: 20110105
  Transmission Date: 20110831
  Serious: Yes (Other)
  Sender: FDA-Public Use
  Company Number: None

PATIENT
  Sex: Male
  Weight: 74.3899 kg

DRUGS (11)
  1. COUMADIN [Concomitant]
  2. RITUXAN [Suspect]
     Indication: LYMPHOMA
     Dosage: 800MG QW IV X8 #8 OF 8
     Route: 042
     Dates: start: 20100702
  3. RITUXAN [Suspect]
     Indication: LYMPHOMA
     Dosage: 800MG QW IV X8 #8 OF 8
     Route: 042
     Dates: start: 20100910
  4. RITUXAN [Suspect]
     Indication: LYMPHOMA
     Dosage: 800MG QW IV X8 #8 OF 8
     Route: 042
     Dates: start: 20100525
  5. RITUXAN [Suspect]
     Indication: LYMPHOMA
     Dosage: 800MG QW IV X8 #8 OF 8
     Route: 042
     Dates: start: 20101202
  6. RITUXAN [Suspect]
     Indication: LYMPHOMA
     Dosage: 800MG QW IV X8 #8 OF 8
     Route: 042
     Dates: start: 20100614
  7. RITUXAN [Suspect]
     Indication: LYMPHOMA
     Dosage: 800MG QW IV X8 #8 OF 8
     Route: 042
     Dates: start: 20100722
  8. RITUXAN [Suspect]
     Indication: LYMPHOMA
     Dosage: 800MG QW IV X8 #8 OF 8
     Route: 042
     Dates: start: 20100817
  9. BENADRYL [Concomitant]
  10. PREDNISONE [Concomitant]
  11. CYTOXAN [Concomitant]

REACTIONS (4)
  - BACK PAIN [None]
  - CHILLS [None]
  - TREMOR [None]
  - INFUSION RELATED REACTION [None]
